FAERS Safety Report 5961136-7 (Version None)
Quarter: 2008Q4

REPORT INFORMATION
  Report Type: 
  Country: None (occurrence: None)
  Receive Date: 20081121
  Receipt Date: 20081113
  Transmission Date: 20090506
  Serious: Yes (Other)
  Sender: FDA-Public Use
  Company Number: US-BAYER-200836454NA

PATIENT
  Age: 54 Year
  Sex: Female

DRUGS (6)
  1. NEXAVAR [Suspect]
     Indication: DRUG USE FOR UNKNOWN INDICATION
     Dates: start: 20080701
  2. FLUOXETINE [Concomitant]
     Dosage: TOTAL DAILY DOSE: 20 MG
  3. LEVOTHYROXINE SODIUM [Concomitant]
     Dosage: TOTAL DAILY DOSE: 175 ?G
  4. GEMFIBROZIL [Concomitant]
  5. ATENOLOL [Concomitant]
     Dosage: TOTAL DAILY DOSE: 25 MG
  6. HYDROCHLOROTHIAZIDE W/TRIAMTERENE [Concomitant]

REACTIONS (4)
  - ACUTE RESPIRATORY DISTRESS SYNDROME [None]
  - ACUTE RESPIRATORY FAILURE [None]
  - PNEUMONITIS [None]
  - RESPIRATORY FAILURE [None]
